FAERS Safety Report 5001682-6 (Version None)
Quarter: 2006Q2

REPORT INFORMATION
  Report Type: 
  Country: None (occurrence: None)
  Receive Date: 20060515
  Receipt Date: 20060426
  Transmission Date: 20061013
  Serious: Yes (Life-Threatening, Hospitalization)
  Sender: FDA-Public Use
  Company Number: DE-BRISTOL-MYERS SQUIBB COMPANY-13358981

PATIENT
  Sex: Male

DRUGS (2)
  1. COAPROVEL TABS 300MG/12.5MG [Suspect]
     Route: 048
  2. AMLODIPINE [Suspect]
     Route: 048

REACTIONS (3)
  - DIABETES MELLITUS NON-INSULIN-DEPENDENT [None]
  - HYPERGLYCAEMIA [None]
  - SPINAL DISORDER [None]
